FAERS Safety Report 9338389 (Version 1)
Quarter: 2013Q2

REPORT INFORMATION
  Report Type: Spontaneous
  Country: US (occurrence: US)
  Receive Date: 20130610
  Receipt Date: 20130610
  Transmission Date: 20140414
  Serious: Yes (Hospitalization, Other)
  Sender: FDA-Public Use
  Company Number: US-ELI_LILLY_AND_COMPANY-US201112005068

PATIENT
  Sex: Female

DRUGS (3)
  1. FORTEO [Suspect]
     Indication: OSTEOPOROSIS
     Dosage: 20 UG, QD
     Route: 065
  2. FORTEO [Suspect]
     Dosage: 20 UG, QD
  3. FORTEO [Suspect]
     Dosage: UNK, QD
     Dates: start: 201105, end: 20130529

REACTIONS (11)
  - Renal failure [Unknown]
  - Thrombosis [Unknown]
  - Paralysis [Recovered/Resolved]
  - Spinal fracture [Unknown]
  - Hypothalamo-pituitary disorder [Not Recovered/Not Resolved]
  - Adrenal disorder [Unknown]
  - Movement disorder [Unknown]
  - Influenza [Recovering/Resolving]
  - Arthritis [Recovered/Resolved]
  - Spondylitis [Recovered/Resolved]
  - Dizziness postural [Unknown]
